FAERS Safety Report 14536670 (Version 1)
Quarter: 2018Q1

REPORT INFORMATION
  Report Type: Report from Study
  Country: AU (occurrence: AU)
  Receive Date: 20180215
  Receipt Date: 20180215
  Transmission Date: 20180509
  Serious: Yes (Other)
  Sender: FDA-Public Use
  Company Number: AU-REGENERON PHARMACEUTICALS, INC.-2018-14182

PATIENT

DRUGS (1)
  1. EYLEA [Suspect]
     Active Substance: AFLIBERCEPT
     Indication: NEOVASCULAR AGE-RELATED MACULAR DEGENERATION
     Dosage: LEFT EYE; TOTAL NUMBER OF INJECTIONS PRIOR TO EVENT UNKNOWN.
     Route: 031
     Dates: start: 20170815

REACTIONS (4)
  - Visual impairment [Unknown]
  - Paraesthesia [Recovered/Resolved]
  - Photopsia [Unknown]
  - Fear of injection [Recovering/Resolving]

NARRATIVE: CASE EVENT DATE: 20170815
